FAERS Safety Report 9613529 (Version 1)
Quarter: 2013Q4

REPORT INFORMATION
  Report Type: Spontaneous
  Country: RO (occurrence: RO)
  Receive Date: 20131010
  Receipt Date: 20131010
  Transmission Date: 20140711
  Serious: Yes (Hospitalization)
  Sender: FDA-Public Use
  Company Number: PHHY2013RO110531

PATIENT
  Age: 68 Year
  Sex: 0

DRUGS (2)
  1. SINTROM [Suspect]
     Dosage: 14 MG
     Route: 048
  2. ACETYLSALICYLIC ACID SANDOZ [Suspect]
     Dosage: 40 MG/DAY
     Route: 048

REACTIONS (8)
  - Hepatic haematoma [Recovering/Resolving]
  - Abdominal pain [Recovering/Resolving]
  - Abdominal distension [Unknown]
  - Anaemia [Recovered/Resolved]
  - International normalised ratio abnormal [Recovered/Resolved]
  - Epistaxis [Recovering/Resolving]
  - Haematochezia [Recovering/Resolving]
  - Retroperitoneal haemorrhage [Recovering/Resolving]
